FAERS Safety Report 10559890 (Version 1)
Quarter: 2014Q4

REPORT INFORMATION
  Report Type: Spontaneous
  Country: US (occurrence: US)
  Receive Date: 20141103
  Receipt Date: 20141103
  Transmission Date: 20150529
  Serious: Yes (Death)
  Sender: FDA-Public Use
  Company Number: US-JNJFOC-20141018634

PATIENT
  Age: 89 Year
  Sex: Male
  Weight: 70.31 kg

DRUGS (1)
  1. DURAGESIC [Suspect]
     Active Substance: FENTANYL
     Indication: PRODUCT USED FOR UNKNOWN INDICATION
     Route: 062
     Dates: start: 20001118

REACTIONS (2)
  - Device malfunction [Fatal]
  - Incorrect product storage [Unknown]

NARRATIVE: CASE EVENT DATE: 20030213
